FAERS Safety Report 6000247-7 (Version None)
Quarter: 2008Q4

REPORT INFORMATION
  Report Type: 
  Country: None (occurrence: None)
  Receive Date: 20081211
  Receipt Date: 20081126
  Transmission Date: 20090506
  Serious: Yes (Hospitalization)
  Sender: FDA-Public Use
  Company Number: 08P-036-0490022-00

PATIENT
  Age: 2 Year
  Sex: Male

DRUGS (1)
  1. SYNAGIS [Suspect]
     Indication: ANTIVIRAL PROPHYLAXIS
     Dosage: 25 MCG INTRAMUSCULAR
     Route: 030
     Dates: start: 20080927, end: 20080927

REACTIONS (4)
  - NASAL CONGESTION [None]
  - PNEUMONIA [None]
  - RESPIRATORY DISTRESS [None]
  - RHINORRHOEA [None]
